FAERS Safety Report 6182989-6 (Version None)
Quarter: 2009Q2

REPORT INFORMATION
  Report Type: 
  Country: None (occurrence: None)
  Receive Date: 20090505
  Receipt Date: 20090428
  Transmission Date: 20091009
  Serious: Yes (Death, Life-Threatening)
  Sender: FDA-Public Use
  Company Number: RU-JNJFOC-20090401173

PATIENT
  Age: 71 Year
  Sex: Female

DRUGS (8)
  1. DECITABINE (DECITABINE) LYOPHILIZED POWDER [Suspect]
     Indication: ACUTE MYELOID LEUKAEMIA
     Dosage: 20 MG/M2, 1 IN 1 DAY, INTRAVENOUS; CYCLE 2; CYCLE 3; 20 MG/M2, 1 IN 1 DAY, INTRAVENOUS
     Route: 042
     Dates: start: 20081222, end: 20081226
  2. DECITABINE (DECITABINE) LYOPHILIZED POWDER [Suspect]
     Indication: ACUTE MYELOID LEUKAEMIA
     Dosage: 20 MG/M2, 1 IN 1 DAY, INTRAVENOUS; CYCLE 2; CYCLE 3; 20 MG/M2, 1 IN 1 DAY, INTRAVENOUS
     Route: 042
     Dates: start: 20090121, end: 20090125
  3. DECITABINE (DECITABINE) LYOPHILIZED POWDER [Suspect]
     Indication: ACUTE MYELOID LEUKAEMIA
     Dosage: 20 MG/M2, 1 IN 1 DAY, INTRAVENOUS; CYCLE 2; CYCLE 3; 20 MG/M2, 1 IN 1 DAY, INTRAVENOUS
     Route: 042
     Dates: start: 20090225, end: 20090301
  4. DECITABINE (DECITABINE) LYOPHILIZED POWDER [Suspect]
     Indication: ACUTE MYELOID LEUKAEMIA
     Dosage: 20 MG/M2, 1 IN 1 DAY, INTRAVENOUS; CYCLE 2; CYCLE 3; 20 MG/M2, 1 IN 1 DAY, INTRAVENOUS
     Route: 042
     Dates: start: 20090325, end: 20090327
  5. ONDANSETRON (ONDANSETRON) SOLUTION [Concomitant]
  6. ALBUMIN (ALBUMIN NORMAL HUMAN SERUM) SOLUTION [Concomitant]
  7. RINGERS INJECTION IN PLASTIC CONTAINER [Concomitant]
  8. DROTAVERIN (DROTAVERINE) [Concomitant]

REACTIONS (8)
  - ASTHENIA [None]
  - FEBRILE NEUTROPENIA [None]
  - HYPERTENSION [None]
  - HYPERTRANSAMINASAEMIA [None]
  - HYPOALBUMINAEMIA [None]
  - MULTI-ORGAN FAILURE [None]
  - PAIN [None]
  - PULMONARY FIBROSIS [None]
